FAERS Safety Report 18090574 (Version 1)
Quarter: 2020Q3

REPORT INFORMATION
  Report Type: Spontaneous
  Country: US (occurrence: US)
  Receive Date: 20200730
  Receipt Date: 20200730
  Transmission Date: 20201103
  Serious: No
  Sender: FDA-Public Use
  Company Number: US-AUROBINDO-AUR-APL-2019-042637

PATIENT
  Age: 60 Year
  Sex: Female

DRUGS (3)
  1. ALPRAZOLAM EXTENDED?RELEASE TABLETS 2MG [Suspect]
     Active Substance: ALPRAZOLAM
     Dosage: 1 DOSAGE FORM, TWO TIMES A DAY
     Route: 048
     Dates: start: 20190703, end: 20190711
  2. ALPRAZOLAM EXTENDED?RELEASE TABLETS 2MG [Suspect]
     Active Substance: ALPRAZOLAM
     Indication: ANXIETY
     Dosage: 1 DOSAGE FORM, TWO TIMES A DAY
     Route: 048
     Dates: start: 20180320
  3. ALPRAZOLAM EXTENDED?RELEASE TABLETS 2MG [Suspect]
     Active Substance: ALPRAZOLAM
     Dosage: 2 MILLIGRAM, ONCE A DAY
     Route: 048

REACTIONS (3)
  - Nausea [Unknown]
  - Dizziness [Unknown]
  - Illness [Unknown]

NARRATIVE: CASE EVENT DATE: 20190703
